FAERS Safety Report 8489797-1 (Version None)
Quarter: 2012Q3

REPORT INFORMATION
  Report Type: 
  Country: None (occurrence: None)
  Receive Date: 20120705
  Receipt Date: 20120627
  Transmission Date: 20120928
  Serious: Yes (Other)
  Sender: FDA-Public Use
  Company Number: US-ELI_LILLY_AND_COMPANY-US201204008501

PATIENT
  Age: 55 Year
  Sex: Male

DRUGS (7)
  1. OXYCODONE HCL [Concomitant]
     Indication: SPINAL COLUMN STENOSIS
  2. ANTIHYPERTENSIVES [Concomitant]
  3. MORPHINE [Concomitant]
     Indication: SPINAL COLUMN STENOSIS
  4. COUMADIN [Concomitant]
     Indication: DEEP VEIN THROMBOSIS
  5. HUMATROPE [Suspect]
     Indication: GROWTH HORMONE DEFICIENCY
     Dosage: 1.0 ML, UNK
     Route: 065
  6. HUMATROPE [Suspect]
     Dosage: .8 ML, UNKNOWN
     Dates: end: 20050101
  7. HUMATROPE [Suspect]
     Dosage: .4 ML, UNKNOWN

REACTIONS (7)
  - LETHARGY [None]
  - ASTHENIA [None]
  - DEPRESSION [None]
  - EMOTIONAL DISORDER [None]
  - FATIGUE [None]
  - DEEP VEIN THROMBOSIS [None]
  - FEELING ABNORMAL [None]
